FAERS Safety Report 11788634 (Version 5)
Quarter: 2016Q1

REPORT INFORMATION
  Report Type: Report from Study
  Country: US (occurrence: US)
  Receive Date: 20151201
  Receipt Date: 20160113
  Transmission Date: 20160525
  Serious: Yes (Hospitalization, Other)
  Sender: FDA-Public Use
  Company Number: US-ABBVIE-15K-163-1509437-00

PATIENT
  Age: 12 Year
  Sex: Female
  Weight: 83.99 kg

DRUGS (13)
  1. CIMZIA [Suspect]
     Active Substance: CERTOLIZUMAB PEGOL
     Indication: PRODUCT USED FOR UNKNOWN INDICATION
     Route: 065
     Dates: start: 2014, end: 201501
  2. HUMIRA [Suspect]
     Active Substance: ADALIMUMAB
     Route: 058
     Dates: start: 201311, end: 201311
  3. HUMIRA [Suspect]
     Active Substance: ADALIMUMAB
     Route: 058
     Dates: start: 20151113
  4. HUMIRA [Suspect]
     Active Substance: ADALIMUMAB
     Indication: CROHN^S DISEASE
     Route: 058
     Dates: start: 201311, end: 201311
  5. HUMIRA [Suspect]
     Active Substance: ADALIMUMAB
     Route: 058
     Dates: start: 2013, end: 2014
  6. CARAFATE [Concomitant]
     Active Substance: SUCRALFATE
     Indication: PRODUCT USED FOR UNKNOWN INDICATION
  7. UNISOM SLEEPTABS [Concomitant]
     Active Substance: DOXYLAMINE SUCCINATE
     Indication: PRODUCT USED FOR UNKNOWN INDICATION
  8. HUMIRA [Suspect]
     Active Substance: ADALIMUMAB
     Route: 058
     Dates: start: 2015
  9. ZOFRAN [Concomitant]
     Active Substance: ONDANSETRON HYDROCHLORIDE
     Indication: PRODUCT USED FOR UNKNOWN INDICATION
     Route: 048
  10. HUMIRA [Suspect]
     Active Substance: ADALIMUMAB
     Route: 058
     Dates: start: 20150130, end: 20151030
  11. BENTYL [Concomitant]
     Active Substance: DICYCLOMINE HYDROCHLORIDE
     Indication: PRODUCT USED FOR UNKNOWN INDICATION
     Route: 048
  12. OMEPRAZOLE. [Concomitant]
     Active Substance: OMEPRAZOLE
     Indication: PRODUCT USED FOR UNKNOWN INDICATION
  13. VITAMIN B12 [Concomitant]
     Active Substance: CYANOCOBALAMIN
     Indication: PRODUCT USED FOR UNKNOWN INDICATION

REACTIONS (13)
  - Abdominal pain [Recovered/Resolved]
  - Headache [Recovered/Resolved]
  - Vomiting [Recovered/Resolved]
  - Fatigue [Not Recovered/Not Resolved]
  - Injection site pain [Recovered/Resolved]
  - Injection site pain [Not Recovered/Not Resolved]
  - Headache [Recovered/Resolved]
  - Gastrointestinal erosion [Unknown]
  - Crohn^s disease [Recovered/Resolved]
  - Enteritis [Unknown]
  - Pyrexia [Recovered/Resolved]
  - Abdominal pain upper [Recovering/Resolving]
  - Fatigue [Recovered/Resolved]

NARRATIVE: CASE EVENT DATE: 201311
